FAERS Safety Report 7398789-5 (Version None)
Quarter: 2011Q2

REPORT INFORMATION
  Report Type: 
  Country: None (occurrence: None)
  Receive Date: 20110401
  Receipt Date: 20110401
  Transmission Date: 20111010
  Serious: No
  Sender: FDA-Public Use
  Company Number: None

PATIENT
  Age: 45 Year
  Sex: Male
  Weight: 136.5327 kg

DRUGS (1)
  1. ASTELIN [Suspect]
     Indication: RHINITIS ALLERGIC
     Dosage: TWO SPRAYS EACH NOSTRIL DAILY NASAL
     Route: 045
     Dates: start: 20110219, end: 20110222

REACTIONS (6)
  - URTICARIA [None]
  - SWELLING FACE [None]
  - RESPIRATORY RATE INCREASED [None]
  - EYE SWELLING [None]
  - GLOSSODYNIA [None]
  - HEART RATE INCREASED [None]
